FAERS Safety Report 9411598 (Version 1)
Quarter: 2013Q3

REPORT INFORMATION
  Report Type: Spontaneous
  Country: DE (occurrence: DE)
  Receive Date: 20130722
  Receipt Date: 20130722
  Transmission Date: 20140515
  Serious: Yes (Life-Threatening)
  Sender: FDA-Public Use
  Company Number: DE-AMGEN-DEUSP2013050276

PATIENT
  Age: 69 Year
  Sex: Male

DRUGS (2)
  1. ENBREL [Suspect]
     Indication: PSORIASIS
     Dosage: 50 MG, UNK
     Route: 058
  2. METHOTREXATE SODIUM [Suspect]
     Indication: PSORIASIS
     Dosage: 17.5 MG, UNK
     Route: 048

REACTIONS (3)
  - Renal cell carcinoma [Unknown]
  - Metastases to lung [Unknown]
  - Metastases to central nervous system [Unknown]
